FAERS Safety Report 10995397 (Version 1)
Quarter: 2015Q2

REPORT INFORMATION
  Report Type: Report from Study
  Country: US (occurrence: US)
  Receive Date: 20150407
  Receipt Date: 20150407
  Transmission Date: 20150821
  Serious: Yes (Hospitalization)
  Sender: FDA-Public Use
  Company Number: PHEH2015US006173

PATIENT
  Age: 29 Year
  Sex: Female
  Weight: 63.49 kg

DRUGS (4)
  1. XOPENEX [Concomitant]
     Active Substance: LEVALBUTEROL HYDROCHLORIDE
     Indication: PRODUCT USED FOR UNKNOWN INDICATION
     Route: 065
  2. FLONASE//FLUTICASONE PROPIONATE [Concomitant]
     Indication: PRODUCT USED FOR UNKNOWN INDICATION
     Route: 065
  3. TOBI [Suspect]
     Active Substance: TOBRAMYCIN
     Indication: CYSTIC FIBROSIS
     Dosage: 300MG/5ML, BID
     Route: 055
     Dates: start: 2009, end: 2009
  4. TOBI [Suspect]
     Active Substance: TOBRAMYCIN
     Indication: LUNG DISORDER

REACTIONS (4)
  - Pancreatitis [Recovering/Resolving]
  - Vomiting [Recovering/Resolving]
  - Pulmonary congestion [Recovering/Resolving]
  - Nausea [Recovering/Resolving]

NARRATIVE: CASE EVENT DATE: 201503
